FAERS Safety Report 17217336 (Version 1)
Quarter: 2019Q4

REPORT INFORMATION
  Report Type: Spontaneous
  Country: JP (occurrence: JP)
  Receive Date: 20191231
  Receipt Date: 20191231
  Transmission Date: 20200122
  Serious: Yes (Hospitalization)
  Sender: FDA-Public Use
  Company Number: JP-TEVA-2019-JP-1159064

PATIENT
  Age: 75 Year
  Sex: Male

DRUGS (3)
  1. PREDNISOLONE. [Suspect]
     Active Substance: PREDNISOLONE
     Indication: OCULAR SARCOIDOSIS
     Dosage: .5 MG/KG DAILY;
     Route: 048
  2. BETAMETHASONE. [Concomitant]
     Active Substance: BETAMETHASONE
     Indication: OCULAR SARCOIDOSIS
     Route: 061
  3. TRIAMCINOLONE ACETONIDE. [Concomitant]
     Active Substance: TRIAMCINOLONE ACETONIDE
     Indication: OCULAR SARCOIDOSIS
     Route: 050

REACTIONS (4)
  - Necrotising retinitis [Recovered/Resolved]
  - Varicella zoster virus infection [Recovered/Resolved]
  - Eye infection viral [Recovered/Resolved]
  - Retinal detachment [Recovered/Resolved]
